FAERS Safety Report 17546863 (Version 1)
Quarter: 2020Q1

REPORT INFORMATION
  Report Type: Spontaneous
  Country: US (occurrence: US)
  Receive Date: 20200309
  Receipt Date: 20200309
  Transmission Date: 20200409
  Serious: Yes (Hospitalization)
  Sender: FDA-Public Use
  Company Number: None

PATIENT
  Age: 65 Year
  Sex: Female

DRUGS (1)
  1. VOTRIENT [Suspect]
     Active Substance: PAZOPANIB HYDROCHLORIDE
     Route: 048
     Dates: start: 20200101

REACTIONS (7)
  - Pyrexia [None]
  - Headache [None]
  - Ageusia [None]
  - Nausea [None]
  - Vomiting [None]
  - Joint swelling [None]
  - Asthenia [None]

NARRATIVE: CASE EVENT DATE: 20200301
